FAERS Safety Report 7170560-9 (Version None)
Quarter: 2010Q4

REPORT INFORMATION
  Report Type: 
  Country: None (occurrence: None)
  Receive Date: 20101214
  Receipt Date: 20101214
  Transmission Date: 20110411
  Serious: Yes (Hospitalization)
  Sender: FDA-Public Use
  Company Number: None

PATIENT
  Sex: Male
  Weight: 68.0396 kg

DRUGS (1)
  1. PACLITAXEL [Suspect]
     Indication: HEAD AND NECK CANCER
     Dosage: 113 MG QWK IV DRIP  WEEKLY INFUSION
     Route: 041
     Dates: start: 20101206, end: 20101206

REACTIONS (2)
  - INFUSION RELATED REACTION [None]
  - SYNCOPE [None]
